FAERS Safety Report 7758940-1 (Version None)
Quarter: 2011Q3

REPORT INFORMATION
  Report Type: 
  Country: None (occurrence: None)
  Receive Date: 20110919
  Receipt Date: 20110913
  Transmission Date: 20111222
  Serious: Yes (Death)
  Sender: FDA-Public Use
  Company Number: JP-ASTELLAS-2011JP006450

PATIENT
  Age: 94 Year
  Sex: Male

DRUGS (2)
  1. FUNGUARD [Suspect]
     Dosage: 100 MG, UNKNOWN/D
     Route: 041
     Dates: start: 20110905, end: 20110911
  2. VANCOMYCIN [Suspect]
     Dosage: UNK
     Route: 065
     Dates: start: 20110902, end: 20110908

REACTIONS (1)
  - PLATELET COUNT DECREASED [None]
